FAERS Safety Report 5382806-8 (Version None)
Quarter: 2007Q3

REPORT INFORMATION
  Report Type: 
  Country: None (occurrence: None)
  Receive Date: 20070705
  Receipt Date: 20070627
  Transmission Date: 20080115
  Serious: Yes (Life-Threatening, Hospitalization)
  Sender: FDA-Public Use
  Company Number: 2007SP013026

PATIENT
  Age: 46 Year
  Sex: Male
  Weight: 78.0187 kg

DRUGS (5)
  1. PEG-INTRON [Suspect]
     Indication: HEPATITIS C
     Dosage: SC
     Route: 058
     Dates: start: 20070223
  2. RIBAVIRIN [Suspect]
     Indication: HEPATITIS C
     Dosage: PO
     Route: 048
     Dates: start: 20070223
  3. CEPHALEXIN [Concomitant]
  4. DILTIAZEM [Concomitant]
  5. FEXOFENADINE [Concomitant]

REACTIONS (1)
  - DIABETIC KETOACIDOSIS [None]
